FAERS Safety Report 9096737 (Version 2)
Quarter: 2013Q1

REPORT INFORMATION
  Report Type: Report from Study
  Country: JP (occurrence: JP)
  Receive Date: 20130211
  Receipt Date: 20130304
  Transmission Date: 20140127
  Serious: Yes (Death)
  Sender: FDA-Public Use
  Company Number: PHHY2013JP012527

PATIENT
  Age: 92 Year
  Sex: Male
  Weight: 55.2 kg

DRUGS (5)
  1. RIVASTIGMIN [Suspect]
     Indication: DEMENTIA ALZHEIMER^S TYPE
     Dosage: 4.5 MG, ONCE A DAY
     Route: 062
     Dates: start: 20121119, end: 201212
  2. RIVASTIGMIN [Suspect]
     Dosage: 9 MG, ONCE A DAY
     Route: 062
     Dates: start: 201212
  3. PLAVIX [Concomitant]
     Dosage: UNK UKN, UNK
     Dates: start: 20130130
  4. BIOFERMIN R [Concomitant]
     Dosage: UNK UKN, UNK
     Dates: start: 20121119, end: 20121125
  5. LENDORMIN DAINIPPO [Concomitant]
     Dosage: UNK UKN, UNK
     Dates: start: 20121119, end: 20121216

REACTIONS (1)
  - Arrhythmia [Fatal]
